FAERS Safety Report 5727732-7 (Version None)
Quarter: 2008Q2

REPORT INFORMATION
  Report Type: 
  Country: None (occurrence: None)
  Receive Date: 20080505
  Receipt Date: 20080422
  Transmission Date: 20081010
  Serious: Yes (Death, Hospitalization)
  Sender: FDA-Public Use
  Company Number: NL-ROCHE-560360

PATIENT
  Sex: Female
  Weight: 60 kg

DRUGS (9)
  1. XELODA [Suspect]
     Route: 048
     Dates: start: 20070502, end: 20070516
  2. SYMBICORT [Concomitant]
  3. SYMBICORT [Concomitant]
  4. PANTOPRAZOLE SODIUM [Concomitant]
  5. MOVICOLON [Concomitant]
  6. MOVICOLON [Concomitant]
  7. METOPROLOL TARTRATE [Concomitant]
  8. AMLODIPINE [Concomitant]
  9. ZOPICLONE [Concomitant]
     Dosage: DRUG NAME ZOPLICON

REACTIONS (6)
  - DEATH [None]
  - DEHYDRATION [None]
  - ILEUS PARALYTIC [None]
  - PAROTITIS [None]
  - RESPIRATORY DISORDER [None]
  - SEPTIC SHOCK [None]
